FAERS Safety Report 23820549 (Version 1)
Quarter: 2024Q2

REPORT INFORMATION
  Report Type: Report from Study
  Country: US (occurrence: US)
  Receive Date: 20240506
  Receipt Date: 20240506
  Transmission Date: 20240716
  Serious: Yes (Other)
  Sender: FDA-Public Use
  Company Number: US-ABBVIE-5742750

PATIENT
  Sex: Male

DRUGS (1)
  1. VENCLEXTA [Suspect]
     Active Substance: VENETOCLAX
     Indication: Chronic lymphocytic leukaemia
     Dosage: TAKE 3 TABLET(S) BY MOUTH (300MG) EVERY DAY TAKE WHOLE WITH WATER AND A MEAL,AT APPROXIMATELY THE...
     Route: 048

REACTIONS (1)
  - Prostate cancer [Unknown]
